FAERS Safety Report 4906164-5 (Version None)
Quarter: 2006Q2

REPORT INFORMATION
  Report Type: 
  Country: None (occurrence: None)
  Receive Date: 20060207
  Receipt Date: 20060207
  Transmission Date: 20061013
  Serious: Yes (Other)
  Sender: FDA-Public Use
  Company Number: None

PATIENT
  Age: 75 Year
  Sex: Female
  Weight: 65 kg

DRUGS (6)
  1. ENBREL [Suspect]
     Indication: PSORIASIS
     Dosage: SEE IMAGE
  2. ZYPREXA [Concomitant]
  3. LEVOTHYROXINE SODIUM [Concomitant]
  4. DOCASATE [Concomitant]
  5. LIPITOR [Concomitant]
  6. LISINOPRIL [Concomitant]

REACTIONS (1)
  - BREAST MASS [None]
